FAERS Safety Report 7552243-6 (Version None)
Quarter: 2011Q2

REPORT INFORMATION
  Report Type: 
  Country: None (occurrence: None)
  Receive Date: 20110616
  Receipt Date: 20041019
  Transmission Date: 20111010
  Serious: Yes (Hospitalization)
  Sender: FDA-Public Use
  Company Number: PHHO2004JP14994

PATIENT
  Sex: Female
  Weight: 44 kg

DRUGS (6)
  1. AMLODIPINE [Concomitant]
     Indication: HYPERTENSION
  2. ALFAROL [Concomitant]
     Indication: OSTEOPOROSIS
  3. LOCHOLEST [Suspect]
     Indication: HYPERCHOLESTEROLAEMIA
     Dosage: 20 MG/DAY
     Dates: start: 20020118
  4. METHYCOBAL [Concomitant]
     Indication: NEUROPATHY PERIPHERAL
  5. MECOBALAMIN [Concomitant]
  6. RIZE [Concomitant]
     Indication: ANXIETY DISORDER

REACTIONS (1)
  - BREAST CANCER [None]
